FAERS Safety Report 9134479 (Version 3)
Quarter: 2013Q2

REPORT INFORMATION
  Report Type: Spontaneous
  Country: AR (occurrence: AR)
  Receive Date: 20130304
  Receipt Date: 20130520
  Transmission Date: 20140414
  Serious: Yes (Other)
  Sender: FDA-Public Use
  Company Number: AR-BRISTOL-MYERS SQUIBB COMPANY-17217894

PATIENT
  Age: 52 Year
  Sex: Female

DRUGS (1)
  1. YERVOY [Suspect]
     Indication: MALIGNANT MELANOMA
     Dosage: 1DF= DOSE: 5 UNITS OF 50 MG?DOSE 4?RECENT DOSE 10-DEC-12
     Dates: start: 20121002

REACTIONS (6)
  - Thrombosis [Unknown]
  - Local swelling [Unknown]
  - Skin discolouration [Recovered/Resolved]
  - Epistaxis [Unknown]
  - Diarrhoea [Unknown]
  - Nasopharyngitis [Unknown]
